FAERS Safety Report 7717632-5 (Version None)
Quarter: 2011Q3

REPORT INFORMATION
  Report Type: 
  Country: None (occurrence: None)
  Receive Date: 20110830
  Receipt Date: 20110830
  Transmission Date: 20111222
  Serious: Yes (Life-Threatening, Hospitalization)
  Sender: FDA-Public Use
  Company Number: None

PATIENT
  Sex: Female

DRUGS (1)
  1. PHENOBARBITAL TAB [Suspect]
     Route: 048
     Dates: start: 20110516, end: 20110615

REACTIONS (15)
  - SCARLET FEVER [None]
  - NO THERAPEUTIC RESPONSE [None]
  - UNDERDOSE [None]
  - PNEUMONIA [None]
  - SKIN WARM [None]
  - PAIN [None]
  - ALANINE AMINOTRANSFERASE INCREASED [None]
  - BLOOD ALKALINE PHOSPHATASE INCREASED [None]
  - DIARRHOEA [None]
  - DRUG RASH WITH EOSINOPHILIA AND SYSTEMIC SYMPTOMS [None]
  - RETCHING [None]
  - OEDEMA PERIPHERAL [None]
  - ASPARTATE AMINOTRANSFERASE INCREASED [None]
  - GAMMA-GLUTAMYLTRANSFERASE INCREASED [None]
  - COMMUNICATION DISORDER [None]
